FAERS Safety Report 21819007 (Version 2)
Quarter: 2023Q4

REPORT INFORMATION
  Report Type: Report from Study
  Country: CN (occurrence: CN)
  Receive Date: 20230104
  Receipt Date: 20231011
  Transmission Date: 20240110
  Serious: Yes (Hospitalization)
  Sender: FDA-Public Use
  Company Number: CN-TAKEDA-2023TUS000181

PATIENT
  Age: 41 Year
  Sex: Male
  Weight: 65 kg

DRUGS (5)
  1. VEDOLIZUMAB [Suspect]
     Active Substance: VEDOLIZUMAB
     Indication: Colitis ulcerative
     Dosage: 300 MILLIGRAM
     Route: 042
     Dates: start: 20220930
  2. ILAPRAZOLE [Concomitant]
     Active Substance: ILAPRAZOLE
     Indication: Gastrooesophageal reflux disease
     Dosage: 5 MILLIGRAM, QD
     Route: 048
     Dates: start: 20221001, end: 20221108
  3. SUCRALFATE [Concomitant]
     Active Substance: SUCRALFATE
     Indication: Gastrooesophageal reflux disease
     Dosage: 5 MILLILITER, QD
     Route: 048
     Dates: start: 20221001, end: 20221108
  4. DIOSMIN [Concomitant]
     Active Substance: DIOSMIN
     Indication: Haemorrhoids
     Dosage: 500 MILLIGRAM, QD
     Route: 048
     Dates: start: 20221229, end: 20230302
  5. MESALAMINE [Concomitant]
     Active Substance: MESALAMINE
     Indication: Inflammatory bowel disease
     Dosage: 4 GRAM, QD
     Route: 048
     Dates: start: 20210916, end: 20221013

REACTIONS (4)
  - Haemorrhoidal haemorrhage [Recovered/Resolved]
  - White blood cell count decreased [Recovered/Resolved]
  - Iron deficiency anaemia [Recovered/Resolved]
  - COVID-19 [Recovered/Resolved]

NARRATIVE: CASE EVENT DATE: 20221013
